FAERS Safety Report 6336364-1 (Version None)
Quarter: 2009Q3

REPORT INFORMATION
  Report Type: 
  Country: None (occurrence: None)
  Receive Date: 20090901
  Receipt Date: 20090820
  Transmission Date: 20100115
  Serious: Yes (Hospitalization)
  Sender: FDA-Public Use
  Company Number: DE-ELI_LILLY_AND_COMPANY-DE200907004630

PATIENT
  Age: 80 Year
  Sex: Female

DRUGS (8)
  1. CYMBALTA [Suspect]
     Indication: DEPRESSION
     Dosage: 30 MG, DAILY (1/D)
     Route: 048
     Dates: start: 20090701
  2. CYMBALTA [Suspect]
     Dosage: 60 MG, DAILY (1/D)
     Route: 048
     Dates: start: 20090708
  3. METOPROLOL [Concomitant]
     Dosage: UNK, UNKNOWN
     Route: 065
  4. ESIDRIX [Concomitant]
     Dosage: UNK, UNKNOWN
     Route: 065
  5. SPIRONOLACTONE [Concomitant]
     Dosage: UNK, UNKNOWN
     Route: 065
  6. OMEPRAZOL [Concomitant]
     Dosage: UNK, UNKNOWN
     Route: 065
  7. NULYTELY [Concomitant]
     Dosage: UNK, UNKNOWN
     Route: 065
  8. CORVATON [Concomitant]
     Dosage: UNK, UNKNOWN
     Route: 065

REACTIONS (7)
  - BLOOD CREATININE DECREASED [None]
  - BLOOD IRON INCREASED [None]
  - DEPRESSION [None]
  - GAMMA-GLUTAMYLTRANSFERASE INCREASED [None]
  - HAEMOGLOBIN DECREASED [None]
  - LEUKOPENIA [None]
  - RED BLOOD CELL COUNT DECREASED [None]
